FAERS Safety Report 6704334-7 (Version None)
Quarter: 2010Q2

REPORT INFORMATION
  Report Type: 
  Country: None (occurrence: None)
  Receive Date: 20100423
  Receipt Date: 20100129
  Transmission Date: 20101027
  Serious: No
  Sender: FDA-Public Use
  Company Number: ALL1-2010-00489

PATIENT
  Age: 9 Year
  Sex: Male

DRUGS (3)
  1. VYVANSE [Suspect]
     Indication: ATTENTION DEFICIT/HYPERACTIVITY DISORDER
     Dosage: 20 MG, 1X/DAY:QD, ORAL; 30 MG, 1X/DAY:QD, ORAL; 20 MG, 1X/DAY,QD, ORAL
     Route: 048
     Dates: start: 20091101, end: 20091201
  2. VYVANSE [Suspect]
     Indication: ATTENTION DEFICIT/HYPERACTIVITY DISORDER
     Dosage: 20 MG, 1X/DAY:QD, ORAL; 30 MG, 1X/DAY:QD, ORAL; 20 MG, 1X/DAY,QD, ORAL
     Route: 048
     Dates: start: 20091201, end: 20100103
  3. VYVANSE [Suspect]
     Indication: ATTENTION DEFICIT/HYPERACTIVITY DISORDER
     Dosage: 20 MG, 1X/DAY:QD, ORAL; 30 MG, 1X/DAY:QD, ORAL; 20 MG, 1X/DAY,QD, ORAL
     Route: 048
     Dates: start: 20100104

REACTIONS (4)
  - DRUG INEFFECTIVE [None]
  - DYSPHEMIA [None]
  - EMOTIONAL DISTRESS [None]
  - FLAT AFFECT [None]
